FAERS Safety Report 7131526-8 (Version None)
Quarter: 2010Q4

REPORT INFORMATION
  Report Type: 
  Country: None (occurrence: None)
  Receive Date: 20101201
  Receipt Date: 20101124
  Transmission Date: 20110411
  Serious: Yes (Other)
  Sender: FDA-Public Use
  Company Number: US-AMGEN-USASP2010006571

PATIENT

DRUGS (2)
  1. ENBREL [Suspect]
     Indication: PSORIATIC ARTHROPATHY
     Dosage: 50 MG, QWK
     Dates: start: 20051001
  2. ENBREL [Suspect]
     Indication: PSORIASIS

REACTIONS (7)
  - DRUG INEFFECTIVE [None]
  - ERYTHEMA [None]
  - FATIGUE [None]
  - PAIN [None]
  - PAIN IN EXTREMITY [None]
  - SKIN CHAPPED [None]
  - VISUAL ACUITY REDUCED [None]
